FAERS Safety Report 14275751 (Version 2)
Quarter: 2018Q2

REPORT INFORMATION
  Report Type: Spontaneous
  Country: US (occurrence: US)
  Receive Date: 20171211
  Receipt Date: 20180628
  Transmission Date: 20180711
  Serious: Yes (Other)
  Sender: FDA-Public Use
  Company Number: US-OTSUKA-2017_018772

PATIENT
  Sex: Male

DRUGS (1)
  1. ABILIFY [Suspect]
     Active Substance: ARIPIPRAZOLE
     Indication: BIPOLAR DISORDER
     Dosage: 15 MG, QD
     Route: 065
     Dates: start: 2013, end: 2013

REACTIONS (8)
  - Compulsive shopping [Not Recovered/Not Resolved]
  - Obsessive-compulsive disorder [Not Recovered/Not Resolved]
  - Bankruptcy [Unknown]
  - Theft [Not Recovered/Not Resolved]
  - Economic problem [Unknown]
  - Brain injury [Unknown]
  - Shoplifting [Not Recovered/Not Resolved]
  - Gambling disorder [Not Recovered/Not Resolved]
